FAERS Safety Report 24259650 (Version 3)
Quarter: 2024Q4

REPORT INFORMATION
  Report Type: Spontaneous
  Country: JP (occurrence: JP)
  Receive Date: 20240828
  Receipt Date: 20241004
  Transmission Date: 20250115
  Serious: Yes (Other)
  Sender: DAIICHI
  Company Number: JP-DAIICHI SANKYO, INC.-DSJ-2024-142070

PATIENT
  Age: 38 Year
  Sex: Female

DRUGS (3)
  1. VANFLYTA [Suspect]
     Active Substance: QUIZARTINIB DIHYDROCHLORIDE
     Indication: Acute myeloid leukaemia
     Dosage: 26.5MG/DAY
     Route: 048
     Dates: start: 202305, end: 2023
  2. VANFLYTA [Suspect]
     Active Substance: QUIZARTINIB DIHYDROCHLORIDE
     Dosage: 17.7 MG, QD
     Route: 048
     Dates: start: 2023, end: 2024
  3. VANFLYTA [Suspect]
     Active Substance: QUIZARTINIB DIHYDROCHLORIDE
     Dosage: 26.5MG/DAY
     Route: 048
     Dates: start: 2024

REACTIONS (3)
  - Renal impairment [Recovered/Resolved]
  - Aplasia pure red cell [Recovered/Resolved]
  - Pneumonia [Recovered/Resolved]

NARRATIVE: CASE EVENT DATE: 20230101
